FAERS Safety Report 24955782 (Version 2)
Quarter: 2025Q1

REPORT INFORMATION
  Report Type: Spontaneous
  Country: GB (occurrence: GB)
  Receive Date: 20250211
  Receipt Date: 20250226
  Transmission Date: 20250408
  Serious: Yes (Other)
  Sender: DR REDDYS
  Company Number: None

PATIENT
  Age: 26 Year
  Sex: Male

DRUGS (1)
  1. FINASTERIDE [Suspect]
     Active Substance: FINASTERIDE
     Indication: Alopecia
     Dates: start: 2024, end: 202404

REACTIONS (16)
  - Suicidal ideation [Not Recovered/Not Resolved]
  - Condition aggravated [Unknown]
  - Mental disorder [Not Recovered/Not Resolved]
  - General physical health deterioration [Not Recovered/Not Resolved]
  - Apathy [Unknown]
  - Personality change [Unknown]
  - Social avoidant behaviour [Unknown]
  - Prescription drug used without a prescription [Unknown]
  - Hypotonia [Not Recovered/Not Resolved]
  - Sexual dysfunction [Not Recovered/Not Resolved]
  - Alopecia [Not Recovered/Not Resolved]
  - Feeling abnormal [Not Recovered/Not Resolved]
  - Emotional poverty [Not Recovered/Not Resolved]
  - Malaise [Not Recovered/Not Resolved]
  - Hypotonia [Not Recovered/Not Resolved]
  - Depressive symptom [Not Recovered/Not Resolved]

NARRATIVE: CASE EVENT DATE: 20240101
